FAERS Safety Report 21169582 (Version 1)
Quarter: 2022Q3

REPORT INFORMATION
  Report Type: Spontaneous
  Country: US (occurrence: US)
  Receive Date: 20220804
  Receipt Date: 20220804
  Transmission Date: 20221027
  Serious: No
  Sender: FDA-Public Use
  Company Number: US-GLAXOSMITHKLINE-USCH2022026765

PATIENT

DRUGS (3)
  1. ADVIL [Suspect]
     Active Substance: IBUPROFEN
     Indication: Arthralgia
     Dosage: 4 DF, QD
  2. ADVIL [Suspect]
     Active Substance: IBUPROFEN
     Dosage: 3 DF, QD
     Dates: start: 20220728, end: 20220728
  3. ADVIL [Suspect]
     Active Substance: IBUPROFEN
     Dosage: 3 DF
     Dates: start: 20220729

REACTIONS (2)
  - Drug ineffective [Unknown]
  - Extra dose administered [Unknown]

NARRATIVE: CASE EVENT DATE: 20220729
